FAERS Safety Report 9687324 (Version 1)
Quarter: 2013Q4

REPORT INFORMATION
  Report Type: Spontaneous
  Country: BR (occurrence: BR)
  Receive Date: 20131114
  Receipt Date: 20131114
  Transmission Date: 20140711
  Serious: Yes (Hospitalization)
  Sender: FDA-Public Use
  Company Number: BR-BIOGENIDEC-2013BI107264

PATIENT
  Age: 38 Year
  Sex: Male

DRUGS (5)
  1. TYSABRI [Suspect]
     Indication: MULTIPLE SCLEROSIS
     Route: 042
     Dates: start: 201205
  2. AMITRIPTILYNE [Concomitant]
     Indication: MIGRAINE
  3. GINKO BILOBA [Concomitant]
     Indication: MIGRAINE
  4. VITAMIN D [Concomitant]
     Indication: HYPOVITAMINOSIS
  5. GINSENG [Concomitant]

REACTIONS (2)
  - Pain in extremity [Not Recovered/Not Resolved]
  - Balance disorder [Not Recovered/Not Resolved]
